FAERS Safety Report 7904876-2 (Version None)
Quarter: 2011Q4

REPORT INFORMATION
  Report Type: 
  Country: None (occurrence: None)
  Receive Date: 20111109
  Receipt Date: 20111031
  Transmission Date: 20120403
  Serious: No
  Sender: FDA-Public Use
  Company Number: PHEH2011US04830

PATIENT
  Sex: Female
  Weight: 66.2 kg

DRUGS (11)
  1. TASIGNA [Suspect]
     Indication: CHRONIC MYELOID LEUKAEMIA
     Dosage: 300 MG, Q12H
     Route: 048
     Dates: start: 20110901
  2. TASIGNA [Suspect]
     Dosage: 150 MG, Q12H
     Route: 048
  3. FISH OIL [Concomitant]
  4. XYZAL [Concomitant]
  5. POTASSIUM [Concomitant]
  6. FLONASE [Concomitant]
  7. ASCORBIC ACID [Concomitant]
  8. VITAMIN B COMPLEX CAP [Concomitant]
  9. FOSAMAX [Concomitant]
  10. THYROID TAB [Concomitant]
  11. CRESTOR [Concomitant]

REACTIONS (4)
  - RESPIRATORY TRACT INFECTION [None]
  - INSOMNIA [None]
  - DIARRHOEA [None]
  - PAIN [None]
